FAERS Safety Report 8537044 (Version 3)
Quarter: 2013Q2

REPORT INFORMATION
  Report Type: Spontaneous
  Country: US (occurrence: US)
  Receive Date: 20120430
  Receipt Date: 20130614
  Transmission Date: 20140414
  Serious: Yes (Hospitalization)
  Sender: FDA-Public Use
  Company Number: US-BAYER-2012-041551

PATIENT
  Age: 18 Year
  Sex: Female

DRUGS (15)
  1. YAZ [Suspect]
     Indication: PREMENSTRUAL SYNDROME
     Dosage: UNK
     Dates: start: 200903, end: 200910
  2. YASMIN [Suspect]
     Indication: PREMENSTRUAL SYNDROME
  3. OCELLA [Suspect]
     Indication: PREMENSTRUAL SYNDROME
  4. KEPPRA [Concomitant]
     Indication: EPILEPSY
     Dosage: UNK
     Dates: start: 200906, end: 200911
  5. FOLIC ACID [Concomitant]
     Dosage: 3 G, DAILY
     Route: 048
  6. KEFLEX [Concomitant]
     Dosage: 500 MG, TID
  7. NASONEX [Concomitant]
     Dosage: 50 ?G, UNK
     Route: 045
  8. ATIVAN [Concomitant]
     Dosage: 1 MG, UNK
     Route: 042
  9. ZOFRAN [Concomitant]
     Dosage: 4 MG, UNK
     Route: 042
  10. DILAUDID [Concomitant]
     Indication: ABDOMINAL PAIN UPPER
     Dosage: 1 MG, TIMES 2
     Route: 042
  11. VICODIN [Concomitant]
     Indication: PAIN
     Dosage: 1-2 EVERY 6 HOURS AS NEEDED
     Route: 048
  12. HYDROCODONE W/APAP [Concomitant]
     Dosage: 500 MG, UNK
  13. CEPHALEXIN [Concomitant]
     Dosage: 500 MG, UNK
  14. KEPPRA [Concomitant]
     Dosage: 3000 MG, DAILY
  15. KEPPRA [Concomitant]
     Dosage: 500 MG, UNK

REACTIONS (6)
  - Gallbladder injury [None]
  - Cholecystitis chronic [None]
  - Pain [None]
  - Injury [None]
  - General physical health deterioration [None]
  - Off label use [None]
